FAERS Safety Report 11541843 (Version 1)
Quarter: 2015Q3

REPORT INFORMATION
  Report Type: Spontaneous
  Country: US (occurrence: US)
  Receive Date: 20150923
  Receipt Date: 20150923
  Transmission Date: 20151125
  Serious: No
  Sender: FDA-Public Use
  Company Number: US-TARO-2015TAR00021

PATIENT
  Sex: Female

DRUGS (1)
  1. LORATADINE SYRUP (LORATADINE ORAL SOLUTION USP) 5MG/5ML [Suspect]
     Active Substance: LORATADINE
     Indication: EUSTACHIAN TUBE DISORDER
     Dosage: 1 TSP, ONCE
     Route: 048
     Dates: start: 20150106, end: 20150106

REACTIONS (3)
  - Product substitution issue [Recovered/Resolved]
  - Ventricular extrasystoles [Recovered/Resolved]
  - Off label use [Recovered/Resolved]

NARRATIVE: CASE EVENT DATE: 20150106
